FAERS Safety Report 9389323 (Version 2)
Quarter: 2013Q3

REPORT INFORMATION
  Report Type: Spontaneous
  Country: US (occurrence: US)
  Receive Date: 20130708
  Receipt Date: 20130807
  Transmission Date: 20140515
  Serious: No
  Sender: FDA-Public Use
  Company Number: US-AMGEN-USASP2013042286

PATIENT
  Age: 34 Year
  Sex: Male
  Weight: 79.37 kg

DRUGS (1)
  1. ENBREL [Suspect]
     Indication: PSORIASIS
     Dosage: 50 MG, UNK, ^TWICE^
     Dates: start: 20130603

REACTIONS (4)
  - Tenderness [Not Recovered/Not Resolved]
  - Erythema [Recovered/Resolved]
  - Inflammation [Not Recovered/Not Resolved]
  - Abdominal distension [Recovered/Resolved]
